FAERS Safety Report 9981442 (Version 1)
Quarter: 2014Q1

REPORT INFORMATION
  Report Type: Report from Study
  Country: CO (occurrence: CO)
  Receive Date: 20140307
  Receipt Date: 20140307
  Transmission Date: 20141002
  Serious: Yes (Death)
  Sender: FDA-Public Use
  Company Number: CO-BRISTOL-MYERS SQUIBB COMPANY-20354692

PATIENT
  Age: 35 Year
  Sex: Female

DRUGS (1)
  1. IXEMPRA [Suspect]
     Dosage: INT 27FEB14
     Route: 042
     Dates: start: 20131230

REACTIONS (1)
  - Respiratory arrest [Fatal]
